FAERS Safety Report 4270897-7 (Version None)
Quarter: 2004Q1

REPORT INFORMATION
  Report Type: 
  Country: None (occurrence: None)
  Receive Date: 20040113
  Receipt Date: 20031224
  Transmission Date: 20041129
  Serious: Yes (Death, Other)
  Sender: FDA-Public Use
  Company Number: 2003IC000638

PATIENT
  Age: 72 Year
  Sex: Male

DRUGS (2)
  1. FLUOROURACIL [Suspect]
     Indication: COLON CANCER
     Dosage: 750 MG; INTRAVENOUS
     Route: 042
     Dates: start: 20031105, end: 20031105
  2. LEUCOVORIN CALCIUM [Suspect]
     Indication: COLON CANCER
     Dosage: 425 MG; INTRAVENOUS DRIP
     Route: 041
     Dates: start: 20031105, end: 20031105

REACTIONS (16)
  - BLOOD PRESSURE DECREASED [None]
  - DEPRESSED LEVEL OF CONSCIOUSNESS [None]
  - DISEASE PROGRESSION [None]
  - DISSEMINATED INTRAVASCULAR COAGULATION [None]
  - ILEUS PARALYTIC [None]
  - JAUNDICE [None]
  - MULTI-ORGAN FAILURE [None]
  - MYALGIA [None]
  - ORGAN FAILURE [None]
  - PLATELET COUNT DECREASED [None]
  - RENAL FAILURE [None]
  - RENAL TUBULAR NECROSIS [None]
  - SEPSIS [None]
  - SPUTUM PURULENT [None]
  - STAPHYLOCOCCAL INFECTION [None]
  - URINE OUTPUT DECREASED [None]
